FAERS Safety Report 14679064 (Version 4)
Quarter: 2018Q2

REPORT INFORMATION
  Report Type: Spontaneous
  Country: PT (occurrence: PT)
  Receive Date: 20180326
  Receipt Date: 20180503
  Transmission Date: 20180711
  Serious: No
  Sender: FDA-Public Use
  Company Number: PT-009507513-1802PRT012324

PATIENT
  Age: 18 Month
  Sex: Female

DRUGS (1)
  1. BETAMETHASONE VALERATE. [Suspect]
     Active Substance: BETAMETHASONE VALERATE
     Indication: DERMATITIS DIAPER
     Dosage: UNK
     Route: 061

REACTIONS (1)
  - Therapy non-responder [Unknown]
